FAERS Safety Report 11873936 (Version 3)
Quarter: 2016Q1

REPORT INFORMATION
  Report Type: Spontaneous
  Country: US (occurrence: US)
  Receive Date: 20151229
  Receipt Date: 20160311
  Transmission Date: 20160526
  Serious: Yes (Hospitalization)
  Sender: FDA-Public Use
  Company Number: US-009507513-1512USA011440

PATIENT
  Age: 23 Year
  Sex: Female
  Weight: 55.78 kg

DRUGS (1)
  1. NEXPLANON [Suspect]
     Active Substance: ETONOGESTREL
     Indication: CONTRACEPTION
     Dosage: UNK
     Route: 059
     Dates: start: 20130923, end: 20160112

REACTIONS (8)
  - Complication of device removal [Recovered/Resolved]
  - Surgery [Recovered/Resolved]
  - Menorrhagia [Recovered/Resolved]
  - Device deployment issue [Recovered/Resolved]
  - Acne [Not Recovered/Not Resolved]
  - Dysmenorrhoea [Unknown]
  - Complication associated with device [Recovered/Resolved]
  - General anaesthesia [Recovered/Resolved]

NARRATIVE: CASE EVENT DATE: 20151001
